FAERS Safety Report 20215970 (Version 2)
Quarter: 2022Q1

REPORT INFORMATION
  Report Type: Spontaneous
  Country: IE (occurrence: IE)
  Receive Date: 20211222
  Receipt Date: 20220209
  Transmission Date: 20220424
  Serious: Yes (Other)
  Sender: FDA-Public Use
  Company Number: IE-SAMSUNG BIOEPIS-SB-2021-28496

PATIENT
  Sex: Female

DRUGS (1)
  1. ETANERCEPT [Suspect]
     Active Substance: ETANERCEPT
     Indication: Rheumatoid arthritis
     Dosage: UNKNOWN
     Route: 058

REACTIONS (7)
  - Cataract [Unknown]
  - Spondylitis [Unknown]
  - Helicobacter infection [Unknown]
  - Sciatica [Unknown]
  - Injection site discomfort [Unknown]
  - Device issue [Unknown]
  - Contraindication to medical treatment [Unknown]
